FAERS Safety Report 10531663 (Version 1)
Quarter: 2014Q4

REPORT INFORMATION
  Report Type: Spontaneous
  Country: US (occurrence: US)
  Receive Date: 20141021
  Receipt Date: 20141021
  Transmission Date: 20150529
  Serious: Yes (Other)
  Sender: FDA-Public Use
  Company Number: US-PFIZER INC-2014287176

PATIENT
  Age: 74 Year
  Sex: Male

DRUGS (1)
  1. CELEBREX [Suspect]
     Active Substance: CELECOXIB
     Indication: ARTHRITIS
     Dosage: 200 MG, UNK
     Dates: end: 201402

REACTIONS (6)
  - Arthritis [Unknown]
  - Aortic valve stenosis [Unknown]
  - Osteoarthritis [Unknown]
  - Expired product administered [Unknown]
  - Coronary artery disease [Unknown]
  - Disease progression [Unknown]
